FAERS Safety Report 5820299-4 (Version None)
Quarter: 2008Q3

REPORT INFORMATION
  Report Type: 
  Country: None (occurrence: None)
  Receive Date: 20080724
  Receipt Date: 20070604
  Transmission Date: 20090109
  Serious: No
  Sender: FDA-Public Use
  Company Number: A0654106A

PATIENT
  Age: 41 Year
  Sex: Female

DRUGS (3)
  1. AVANDIA [Suspect]
     Dosage: 4MG PER DAY
     Route: 048
  2. GLUCOPHAGE [Concomitant]
  3. ALTACE [Concomitant]

REACTIONS (4)
  - CHEST PAIN [None]
  - FLUSHING [None]
  - OEDEMA [None]
  - PAIN IN EXTREMITY [None]
